FAERS Safety Report 8357945-X (Version None)
Quarter: 2012Q2

REPORT INFORMATION
  Report Type: 
  Country: None (occurrence: None)
  Receive Date: 20120514
  Receipt Date: 20120503
  Transmission Date: 20120825
  Serious: Yes (Other)
  Sender: FDA-Public Use
  Company Number: FR-JNJFOC-20120506451

PATIENT
  Sex: Female

DRUGS (5)
  1. REMICADE [Suspect]
     Dosage: 14TH INFUSION
     Route: 042
  2. PENTASA [Concomitant]
     Route: 065
  3. PAROXETINE HYDROCHLORIDE [Concomitant]
     Route: 065
  4. REMICADE [Suspect]
     Dosage: 13TH INFUSION
     Route: 042
     Dates: start: 20120401
  5. REMICADE [Suspect]
     Indication: COLITIS ULCERATIVE
     Route: 042

REACTIONS (3)
  - INFUSION RELATED REACTION [None]
  - ERYTHEMA [None]
  - MALAISE [None]
